FAERS Safety Report 15362167 (Version 10)
Quarter: 2020Q4

REPORT INFORMATION
  Report Type: Spontaneous
  Country: DE (occurrence: DE)
  Receive Date: 20180907
  Receipt Date: 20201218
  Transmission Date: 20210113
  Serious: Yes (Hospitalization, Other)
  Sender: FDA-Public Use
  Company Number: PHHY2018DE090278

PATIENT
  Sex: Female
  Weight: 78 kg

DRUGS (17)
  1. PREDNISOLONE. [Suspect]
     Active Substance: PREDNISOLONE
     Dosage: 4 MG, QD
     Route: 048
  2. PREDNISOLONE. [Suspect]
     Active Substance: PREDNISOLONE
     Dosage: 60 MG, QD
     Route: 048
  3. ROACTEMRA [Suspect]
     Active Substance: TOCILIZUMAB
     Indication: GIANT CELL ARTERITIS
     Dosage: 162 MG, QW (ON 14/NOV/2018, THE MOST RECENT DOSE OF TOCILIZUMAB WAS TAKEN)
     Route: 058
     Dates: start: 20180109
  4. FALITHROM [Suspect]
     Active Substance: PHENPROCOUMON
     Indication: PRODUCT USED FOR UNKNOWN INDICATION
     Dosage: UNK
     Route: 065
  5. DEKRISTOL [Concomitant]
     Active Substance: CHOLECALCIFEROL
     Indication: PRODUCT USED FOR UNKNOWN INDICATION
     Dosage: 20000 IU, BIW
     Route: 048
  6. CLEXANE [Concomitant]
     Active Substance: ENOXAPARIN SODIUM
     Dosage: UNK (0.5)
     Route: 058
  7. PREDNISOLONE. [Suspect]
     Active Substance: PREDNISOLONE
     Indication: PRODUCT USED FOR UNKNOWN INDICATION
     Dosage: 10 MG, QD
     Route: 048
  8. PREDNISOLONE. [Suspect]
     Active Substance: PREDNISOLONE
     Dosage: 7 MG, QD (PHASING OUT FURTHER,1/0/0)
     Route: 048
  9. AMLODIPIN [Concomitant]
     Active Substance: AMLODIPINE BESYLATE
     Indication: PRODUCT USED FOR UNKNOWN INDICATION
     Dosage: 5 MG, QD
     Route: 048
  10. CLEXANE [Concomitant]
     Active Substance: ENOXAPARIN SODIUM
     Indication: PRODUCT USED FOR UNKNOWN INDICATION
     Dosage: 2 OT, QD
     Route: 058
  11. ROACTEMRA [Suspect]
     Active Substance: TOCILIZUMAB
     Dosage: 162 MG, QW
     Route: 058
     Dates: start: 202005
  12. ROACTEMRA [Suspect]
     Active Substance: TOCILIZUMAB
     Dosage: 162 MG, QW
     Route: 058
     Dates: start: 20201118
  13. MULTAQ [Concomitant]
     Active Substance: DRONEDARONE
     Indication: PRODUCT USED FOR UNKNOWN INDICATION
     Dosage: 400 MG, 0.5 (1/0/1)
     Route: 065
  14. XARELTO [Concomitant]
     Active Substance: RIVAROXABAN
     Indication: PRODUCT USED FOR UNKNOWN INDICATION
     Dosage: 20 MG, QD
     Route: 065
  15. DRONEDARONE [Concomitant]
     Active Substance: DRONEDARONE
     Indication: PRODUCT USED FOR UNKNOWN INDICATION
     Dosage: 400 MG, QD
     Route: 048
  16. ROACTEMRA [Suspect]
     Active Substance: TOCILIZUMAB
     Dosage: 162 MG, QW
     Route: 058
     Dates: start: 20180117, end: 20200422
  17. CANDESARTAN. [Concomitant]
     Active Substance: CANDESARTAN
     Indication: PRODUCT USED FOR UNKNOWN INDICATION
     Dosage: 16 MG, QD (1/0/0)
     Route: 048

REACTIONS (26)
  - Liver function test increased [Recovered/Resolved]
  - Visual impairment [Recovered/Resolved]
  - Nasopharyngitis [Recovered/Resolved]
  - Vision blurred [Recovering/Resolving]
  - Intra-abdominal haemorrhage [Recovered/Resolved]
  - Muscle haemorrhage [Recovering/Resolving]
  - Gait disturbance [Not Recovered/Not Resolved]
  - Oedema peripheral [Recovering/Resolving]
  - Weight increased [Not Recovered/Not Resolved]
  - Drug ineffective [Unknown]
  - Erysipelas [Recovered/Resolved]
  - Nausea [Recovering/Resolving]
  - Headache [Not Recovered/Not Resolved]
  - Arteritis [Recovered/Resolved]
  - Internal haemorrhage [Recovering/Resolving]
  - Foreign body [Unknown]
  - Intra-abdominal haematoma [Not Recovered/Not Resolved]
  - Herpes zoster [Recovered/Resolved]
  - Fatigue [Not Recovered/Not Resolved]
  - Asthenia [Not Recovered/Not Resolved]
  - Hypertension [Recovered/Resolved]
  - Pain in extremity [Not Recovered/Not Resolved]
  - Overdose [Unknown]
  - Dizziness [Not Recovered/Not Resolved]
  - Vomiting [Not Recovered/Not Resolved]
  - Giant cell arteritis [Recovering/Resolving]

NARRATIVE: CASE EVENT DATE: 201803
